FAERS Safety Report 15787087 (Version 1)
Quarter: 2019Q1

REPORT INFORMATION
  Report Type: Spontaneous
  Country: US (occurrence: US)
  Receive Date: 20190103
  Receipt Date: 20190103
  Transmission Date: 20190417
  Serious: Yes (Other)
  Sender: FDA-Public Use
  Company Number: US-BAUSCH-BL-2018-035933

PATIENT
  Age: 5 Decade
  Sex: Male

DRUGS (3)
  1. TRETINOIN. [Suspect]
     Active Substance: TRETINOIN
     Indication: KERATOSIS FOLLICULAR
     Route: 065
  2. UREA. [Suspect]
     Active Substance: UREA
     Indication: KERATOSIS FOLLICULAR
     Route: 065
  3. SALICYLIC ACID. [Suspect]
     Active Substance: SALICYLIC ACID
     Indication: KERATOSIS FOLLICULAR
     Route: 065

REACTIONS (1)
  - Therapy non-responder [Unknown]
